FAERS Safety Report 24638236 (Version 1)
Quarter: 2024Q4

REPORT INFORMATION
  Report Type: Spontaneous
  Country: US (occurrence: None)
  Receive Date: 20241119
  Receipt Date: 20241119
  Transmission Date: 20250115
  Serious: No
  Sender: Public
  Company Number: None

PATIENT
  Age: 79 Year
  Sex: Male
  Weight: 97 kg

DRUGS (1)
  1. APIXABAN [Suspect]
     Active Substance: APIXABAN
     Indication: Atrial fibrillation
     Dosage: FREQUENCY : TWICE A DAY;?
     Route: 048

REACTIONS (7)
  - Asthenia [None]
  - Shock haemorrhagic [None]
  - Gastrointestinal haemorrhage [None]
  - Coagulopathy [None]
  - Haemoglobin decreased [None]
  - Gastrointestinal angiodysplasia [None]
  - Refusal of treatment by patient [None]

NARRATIVE: CASE EVENT DATE: 20240620
